FAERS Safety Report 5599751-5 (Version None)
Quarter: 2008Q1

REPORT INFORMATION
  Report Type: 
  Country: None (occurrence: None)
  Receive Date: 20080118
  Receipt Date: 20080118
  Transmission Date: 20080703
  Serious: Yes (Life-Threatening)
  Sender: FDA-Public Use
  Company Number: None

PATIENT
  Sex: Male
  Weight: 128.368 kg

DRUGS (2)
  1. PROGRAF [Suspect]
     Dates: start: 20080101, end: 20080102
  2. MYCOPHENOLATE MOFETIL [Suspect]
     Dates: start: 20071231, end: 20080102

REACTIONS (3)
  - HEPATIC ARTERY THROMBOSIS [None]
  - SURGICAL PROCEDURE REPEATED [None]
  - TRANSPLANT FAILURE [None]
